FAERS Safety Report 4811435-7 (Version None)
Quarter: 2005Q4

REPORT INFORMATION
  Report Type: 
  Country: None (occurrence: None)
  Receive Date: 20051026
  Receipt Date: 20051026
  Transmission Date: 20060501
  Serious: Yes (Hospitalization, Other)
  Sender: FDA-Public Use
  Company Number: None

PATIENT
  Sex: Male
  Weight: 86.637 kg

DRUGS (3)
  1. CLOZAPINE [Suspect]
     Indication: SCHIZOPHRENIA
     Dosage: 400MG PO Q DAY
     Route: 048
     Dates: start: 20040101
  2. HYDROCHLOROTHIAZIDE [Concomitant]
  3. PROTONIX [Concomitant]

REACTIONS (1)
  - DYSPHAGIA [None]
